FAERS Safety Report 4407396-5 (Version None)
Quarter: 2004Q3

REPORT INFORMATION
  Report Type: 
  Country: None (occurrence: None)
  Receive Date: 20040723
  Receipt Date: 20040723
  Transmission Date: 20050211
  Serious: Yes (Hospitalization)
  Sender: FDA-Public Use
  Company Number: None

PATIENT
  Weight: 142.8831 kg

DRUGS (1)
  1. HYDROCORTISONE ACETATE INJ [Suspect]
     Dosage: 100 MG IV
     Route: 042

REACTIONS (1)
  - PSYCHOTIC DISORDER [None]
